FAERS Safety Report 17490537 (Version 1)
Quarter: 2020Q1

REPORT INFORMATION
  Report Type: Spontaneous
  Country: US (occurrence: US)
  Receive Date: 20200303
  Receipt Date: 20200303
  Transmission Date: 20200409
  Serious: No
  Sender: FDA-Public Use
  Company Number: US-AKORN PHARMACEUTICALS-2019AKN00354

PATIENT
  Sex: Male
  Weight: 61.22 kg

DRUGS (7)
  1. MYORISAN [Suspect]
     Active Substance: ISOTRETINOIN
     Dosage: 20 MG, 1X/DAY ^AM^
     Dates: start: 201812, end: 201902
  2. MYORISAN [Suspect]
     Active Substance: ISOTRETINOIN
     Dosage: 40 MG, 1X/DAY ^PM^
     Dates: start: 201812, end: 201902
  3. SALINE NASAL SPRAY [Concomitant]
     Active Substance: SODIUM CHLORIDE
  4. CLEAR SHEER SUNSCREEN [Concomitant]
  5. L EPICERAM [Concomitant]
  6. MYORISAN [Suspect]
     Active Substance: ISOTRETINOIN
     Indication: ACNE
     Dosage: 20 MG, 2X/DAY ^20 MG IN AM, 20 MG PM^
     Dates: start: 20181107, end: 201812
  7. UNSPECIFIED GENTLE CLEANSER [Concomitant]

REACTIONS (2)
  - Erectile dysfunction [Recovered/Resolved]
  - Epistaxis [Recovered/Resolved]
